FAERS Safety Report 18958794 (Version 1)
Quarter: 2021Q1

REPORT INFORMATION
  Report Type: Spontaneous
  Country: FR (occurrence: FR)
  Receive Date: 20210302
  Receipt Date: 20210302
  Transmission Date: 20210420
  Serious: Yes (Other)
  Sender: FDA-Public Use
  Company Number: FR-ABBVIE-21K-056-3791702-00

PATIENT
  Age: 44 Year
  Sex: Female

DRUGS (7)
  1. EMTRICITABINE;TENOFOVIR [Concomitant]
     Active Substance: EMTRICITABINE\TENOFOVIR
     Indication: HEPATITIS B
  2. RITONAVIR. [Interacting]
     Active Substance: RITONAVIR
     Indication: HEPATITIS B
  3. RITONAVIR. [Suspect]
     Active Substance: RITONAVIR
     Indication: HIV INFECTION
     Route: 048
  4. EMTRICITABINE;TENOFOVIR [Concomitant]
     Active Substance: EMTRICITABINE\TENOFOVIR
     Indication: HIV INFECTION
  5. TRIAMCINOLONE ACETONIDE. [Interacting]
     Active Substance: TRIAMCINOLONE ACETONIDE
     Indication: EPICONDYLITIS
     Route: 052
     Dates: start: 201910
  6. DARUNAVIR [Concomitant]
     Active Substance: DARUNAVIR
     Indication: HIV INFECTION
  7. DARUNAVIR [Concomitant]
     Active Substance: DARUNAVIR
     Indication: HEPATITIS B

REACTIONS (3)
  - Drug interaction [Unknown]
  - Hyperadrenocorticism [Recovered/Resolved]
  - Kaposi^s sarcoma [Recovering/Resolving]

NARRATIVE: CASE EVENT DATE: 201912
